FAERS Safety Report 19817360 (Version 1)
Quarter: 2021Q3

REPORT INFORMATION
  Report Type: Spontaneous
  Country: GB (occurrence: GB)
  Receive Date: 20210910
  Receipt Date: 20210910
  Transmission Date: 20211014
  Serious: Yes (Death, Hospitalization, Other)
  Sender: FDA-Public Use
  Company Number: GB-INSUD PHARMA-2108GB00966

PATIENT

DRUGS (2)
  1. ABEMACICLIB [Suspect]
     Active Substance: ABEMACICLIB
     Indication: INVASIVE LOBULAR BREAST CARCINOMA
     Dosage: 150 MG TWICE DAILY
     Route: 048
  2. FULVESTRANT. [Suspect]
     Active Substance: FULVESTRANT
     Indication: INVASIVE LOBULAR BREAST CARCINOMA
     Dosage: 500 MG INTRAMUSCULAR INJECTION
     Route: 030

REACTIONS (13)
  - Acute hepatic failure [Fatal]
  - Non-cirrhotic portal hypertension [Unknown]
  - Haemolysis [Unknown]
  - Headache [Unknown]
  - Anaemia [Unknown]
  - Portal vein thrombosis [Unknown]
  - Hyperpyrexia [Unknown]
  - Brain oedema [Fatal]
  - Hepatotoxicity [Unknown]
  - Multiple organ dysfunction syndrome [Unknown]
  - Liver injury [Unknown]
  - Hepatic necrosis [Unknown]
  - Vision blurred [Unknown]
